FAERS Safety Report 4747414-8 (Version None)
Quarter: 2005Q3

REPORT INFORMATION
  Report Type: 
  Country: None (occurrence: None)
  Receive Date: 20050815
  Receipt Date: 20050506
  Transmission Date: 20060218
  Serious: No
  Sender: FDA-Public Use
  Company Number: USA050597526

PATIENT
  Sex: Male

DRUGS (7)
  1. CIALIS [Suspect]
     Indication: ERECTILE DYSFUNCTION
     Dosage: 20 MG
     Dates: start: 20040101
  2. LIPITOR [Concomitant]
  3. ALLEGRA [Concomitant]
  4. LOPRESSOR [Concomitant]
  5. PLAVIX [Concomitant]
  6. FLOMAX MR (TAMSULOSIN HYDROCHLORIDE) [Concomitant]
  7. CELEBREX [Concomitant]

REACTIONS (1)
  - PREMATURE EJACULATION [None]
